FAERS Safety Report 5727473-6 (Version None)
Quarter: 2008Q2

REPORT INFORMATION
  Report Type: 
  Country: None (occurrence: None)
  Receive Date: 20080505
  Receipt Date: 20080429
  Transmission Date: 20081010
  Serious: Yes (Other)
  Sender: FDA-Public Use
  Company Number: KR-JNJFOC-20080406527

PATIENT
  Age: 40 Year
  Sex: Male

DRUGS (4)
  1. RISPERDAL [Suspect]
     Indication: SCHIZOPHRENIA
     Route: 048
  2. GLIMEPIRIDE [Concomitant]
     Indication: DIABETES MELLITUS
     Route: 048
  3. SEDATION [Concomitant]
     Indication: SEDATION
     Route: 048
  4. SEDATION [Concomitant]
     Route: 048

REACTIONS (2)
  - DIABETES MELLITUS [None]
  - PARAESTHESIA [None]
